FAERS Safety Report 4882508-8 (Version None)
Quarter: 2005Q4

REPORT INFORMATION
  Report Type: 
  Country: None (occurrence: None)
  Receive Date: 20051201
  Receipt Date: 20050924
  Transmission Date: 20060501
  Serious: No
  Sender: FDA-Public Use
  Company Number: 2005PV002765

PATIENT
  Age: 77 Year
  Sex: Male
  Weight: 103.4201 kg

DRUGS (12)
  1. BYETTA [Suspect]
     Indication: DIABETES MELLITUS NON-INSULIN-DEPENDENT
     Dosage: 5 MCG;BID;SC
     Route: 058
     Dates: start: 20050101
  2. LANTUS [Concomitant]
  3. HUMALOG [Concomitant]
  4. LASIX [Concomitant]
  5. ATACAND [Concomitant]
  6. ACCUPRIL [Concomitant]
  7. VERAPAMIL [Concomitant]
  8. FLOMAX [Concomitant]
  9. ALDACTONE [Concomitant]
  10. COREG [Concomitant]
  11. LIPITOR [Concomitant]
  12. MULTIVITAMIN [Concomitant]

REACTIONS (5)
  - BLOOD GLUCOSE INCREASED [None]
  - ERUCTATION [None]
  - FLATULENCE [None]
  - THERAPEUTIC RESPONSE UNEXPECTED [None]
  - WEIGHT DECREASED [None]
